FAERS Safety Report 5854864-5 (Version None)
Quarter: 2008Q3

REPORT INFORMATION
  Report Type: 
  Country: None (occurrence: None)
  Receive Date: 20080822
  Receipt Date: 20080219
  Transmission Date: 20090109
  Serious: No
  Sender: FDA-Public Use
  Company Number: US-ABBOTT-08P-163-0439216-00

PATIENT
  Age: 66 Year
  Sex: Female

DRUGS (4)
  1. SYNTHROID [Suspect]
     Indication: THYROID DISORDER
     Route: 048
  2. ESTROPIPATE [Suspect]
     Indication: HOT FLUSH
     Route: 048
     Dates: start: 20030101, end: 20080111
  3. RIFAMPICIN [Suspect]
     Indication: MYCOBACTERIUM AVIUM COMPLEX INFECTION
     Route: 048
  4. LINUM USITATISSIMUM SEED OIL [Suspect]
     Indication: HOT FLUSH
     Route: 048
     Dates: start: 20080111

REACTIONS (2)
  - ABDOMINAL PAIN UPPER [None]
  - FOOD INTERACTION [None]
